FAERS Safety Report 4290950-1 (Version None)
Quarter: 2004Q1

REPORT INFORMATION
  Report Type: 
  Country: None (occurrence: None)
  Receive Date: 20040211
  Receipt Date: 20031017
  Transmission Date: 20041129
  Serious: No
  Sender: FDA-Public Use
  Company Number: US-GLAXOSMITHKLINE-A0430692A

PATIENT
  Age: 43 Year
  Sex: Female

DRUGS (2)
  1. PAXIL [Suspect]
     Indication: DEPRESSION
     Route: 048
     Dates: start: 20021201, end: 20030130
  2. TEMAZEPAM [Concomitant]

REACTIONS (3)
  - CONSTIPATION [None]
  - GALACTORRHOEA [None]
  - LETHARGY [None]
